FAERS Safety Report 6035000-1 (Version None)
Quarter: 2009Q1

REPORT INFORMATION
  Report Type: 
  Country: None (occurrence: None)
  Receive Date: 20090109
  Receipt Date: 20081229
  Transmission Date: 20090719
  Serious: No
  Sender: FDA-Public Use
  Company Number: DSU-2008-01759

PATIENT
  Age: 83 Year
  Sex: Female

DRUGS (3)
  1. OLMESARTAN MEDOXOMIL [Suspect]
     Indication: HEART RATE IRREGULAR
     Dosage: 10 MG (10 MG,QD),PER ORAL
     Route: 048
     Dates: start: 20080917, end: 20080901
  2. PURAN T4 (LEVOTHYROXINE SODIUM) (LEVOTHYROXINE SODIUM) [Concomitant]
  3. EUTHYROX (LEVOTHYROXINE SODIUM) (LEVOTHYROXINE SODIUM) [Concomitant]

REACTIONS (1)
  - ORTHOSTATIC HYPOTENSION [None]
